FAERS Safety Report 8291921-0 (Version None)
Quarter: 2012Q2

REPORT INFORMATION
  Report Type: 
  Country: None (occurrence: None)
  Receive Date: 20120417
  Receipt Date: 20110316
  Transmission Date: 20120825
  Serious: No
  Sender: FDA-Public Use
  Company Number: US-ASTRAZENECA-2011SE14699

PATIENT
  Age: 77 Year
  Sex: Female
  Weight: 79.4 kg

DRUGS (8)
  1. LEVOTHYROXINE SODIUM [Concomitant]
  2. MULTI-VITAMIN [Concomitant]
  3. BENICAR [Concomitant]
  4. NEXIUM [Suspect]
     Route: 048
  5. CRESTOR [Concomitant]
  6. CARDIZEM CD [Concomitant]
  7. ATIVAN [Concomitant]
     Dosage: 81 MG
  8. ASPIRIN [Concomitant]
     Dosage: 81 MG

REACTIONS (1)
  - BONE LOSS [None]
